APPROVED DRUG PRODUCT: RANOLAZINE
Active Ingredient: RANOLAZINE
Strength: 500MG
Dosage Form/Route: TABLET, EXTENDED RELEASE;ORAL
Application: A211707 | Product #001
Applicant: SUN PHARMACEUTICAL INDUSTRIES LTD
Approved: May 28, 2019 | RLD: No | RS: No | Type: DISCN